FAERS Safety Report 4830669-9 (Version None)
Quarter: 2005Q4

REPORT INFORMATION
  Report Type: 
  Country: None (occurrence: None)
  Receive Date: 20051114
  Receipt Date: 20051026
  Transmission Date: 20060501
  Serious: Yes (Other)
  Sender: FDA-Public Use
  Company Number: 430003L05JPN

PATIENT
  Age: 20 Year
  Sex: Female

DRUGS (4)
  1. NOVANTRONE [Suspect]
     Indication: PERIPHERAL T-CELL LYMPHOMA UNSPECIFIED RECURRENT
     Dosage: INTRAVENOUS
     Route: 042
  2. IFOSFAMIDE [Suspect]
     Indication: PERIPHERAL T-CELL LYMPHOMA UNSPECIFIED RECURRENT
  3. PREDNISONE [Suspect]
     Indication: PERIPHERAL T-CELL LYMPHOMA UNSPECIFIED RECURRENT
  4. VINDESINE SULFATE [Suspect]
     Indication: PERIPHERAL T-CELL LYMPHOMA UNSPECIFIED RECURRENT

REACTIONS (2)
  - DRUG EXPOSURE DURING PREGNANCY [None]
  - PNEUMOCYSTIS JIROVECI PNEUMONIA [None]
